FAERS Safety Report 8852633 (Version 2)
Quarter: 2012Q4

REPORT INFORMATION
  Report Type: 
  Country: US (occurrence: US)
  Receive Date: 20121022
  Receipt Date: 20121023
  Transmission Date: 20130627
  Serious: Yes (Other)
  Sender: FDA-Public Use
  Company Number: US-PFIZER INC-2012256623

PATIENT
  Age: 39 Year
  Sex: Male

DRUGS (11)
  1. VARENICLINE TARTRATE [Suspect]
     Indication: SMOKING CESSATION THERAPY
     Dosage: UNK
  2. NORTRIPTYLINE [Concomitant]
     Indication: SLEEP DISORDER
     Dosage: UNK
  3. BUTALBITAL/CAFFEINE/PARACETAMOL [Concomitant]
     Indication: NECK PAIN
     Dosage: UNK
  4. PREGABALIN [Concomitant]
     Dosage: UNK
  5. LEVOCARNITINE [Concomitant]
     Dosage: UNK
  6. RIBOFLAVIN [Concomitant]
     Dosage: UNK
  7. MULTIVITAMINS W/MINERALS [Concomitant]
     Dosage: UNK
  8. VITAMIN E [Concomitant]
     Indication: METABOLIC DISORDER
     Dosage: UNK
  9. FLUNISOLIDE [Concomitant]
     Dosage: UNK
  10. HYDROCHLOROTHIAZIDE [Concomitant]
     Dosage: UNK
  11. NAPROXEN [Concomitant]
     Indication: HEADACHE
     Dosage: UNK

REACTIONS (3)
  - Suicidal ideation [Recovering/Resolving]
  - Social avoidant behaviour [Recovering/Resolving]
  - Abnormal dreams [Unknown]
